FAERS Safety Report 19349509 (Version 3)
Quarter: 2021Q3

REPORT INFORMATION
  Report Type: Other
  Country: US (occurrence: US)
  Receive Date: 20210531
  Receipt Date: 20210913
  Transmission Date: 20211014
  Serious: Yes (Hospitalization, Other)
  Sender: FDA-Public Use
  Company Number: US-INTERCEPT-PM2021001764

PATIENT
  Age: 65 Year
  Sex: Male

DRUGS (16)
  1. FEROSUL [Concomitant]
     Active Substance: FERROUS SULFATE
     Dosage: UNK
  2. FISH OIL CONCENTRATE [Concomitant]
     Active Substance: FISH OIL
     Dosage: UNK
  3. MONTELUKAST [Concomitant]
     Active Substance: MONTELUKAST SODIUM
     Dosage: UNK
  4. OCALIVA [Suspect]
     Active Substance: OBETICHOLIC ACID
     Indication: PRIMARY BILIARY CHOLANGITIS
     Dosage: 5 MILLIGRAM, QW
     Route: 048
     Dates: start: 20200714, end: 20201225
  5. OMEPRAZOLE. [Concomitant]
     Active Substance: OMEPRAZOLE
     Dosage: UNK
  6. SPIRONOLACTON [Concomitant]
     Active Substance: SPIRONOLACTONE
     Dosage: UNK
  7. CYCLOBENZAPRIN [Concomitant]
     Active Substance: CYCLOBENZAPRINE
     Dosage: UNK
  8. ESOMEPRA [Concomitant]
     Active Substance: ESOMEPRAZOLE
     Dosage: UNK
  9. NITROFUR [Concomitant]
     Active Substance: NITROFURANTOIN
     Dosage: UNK
  10. GABAPENTIN. [Concomitant]
     Active Substance: GABAPENTIN
     Dosage: UNK
  11. OCALIVA [Suspect]
     Active Substance: OBETICHOLIC ACID
     Dosage: 5 MILLIGRAM, QW
     Route: 048
     Dates: end: 20210608
  12. NITROFURANTIN [Concomitant]
     Active Substance: NITROFURANTOIN
     Dosage: UNK
  13. OXYBUTYNIN. [Concomitant]
     Active Substance: OXYBUTYNIN CHLORIDE
     Dosage: UNK
  14. TAMSULOSIN [Concomitant]
     Active Substance: TAMSULOSIN
     Dosage: UNK
  15. COSENTYX [Concomitant]
     Active Substance: SECUKINUMAB
     Dosage: UNK
  16. FUROSEMIDE. [Concomitant]
     Active Substance: FUROSEMIDE
     Dosage: UNK

REACTIONS (7)
  - Nephrolithiasis [Unknown]
  - Hepatic cirrhosis [Unknown]
  - Ureteral stent insertion [Unknown]
  - Nephrectomy [Recovered/Resolved]
  - Urinary tract infection enterococcal [Unknown]
  - Ureteric perforation [Unknown]
  - Urinary tract infection pseudomonal [Unknown]

NARRATIVE: CASE EVENT DATE: 20210415
